FAERS Safety Report 8045792-8 (Version None)
Quarter: 2012Q1

REPORT INFORMATION
  Report Type: 
  Country: None (occurrence: None)
  Receive Date: 20120113
  Receipt Date: 20110616
  Transmission Date: 20120608
  Serious: No
  Sender: FDA-Public Use
  Company Number: US-BAYER-2012-004059

PATIENT

DRUGS (1)
  1. CIPRO [Suspect]

REACTIONS (1)
  - NO ADVERSE EVENT [None]
